FAERS Safety Report 8155880-3 (Version None)
Quarter: 2012Q1

REPORT INFORMATION
  Report Type: 
  Country: None (occurrence: None)
  Receive Date: 20120222
  Receipt Date: 20120217
  Transmission Date: 20120608
  Serious: Yes (Hospitalization, Other)
  Sender: FDA-Public Use
  Company Number: CA-TEVA-323514USA

PATIENT
  Age: 68 Year
  Sex: Female
  Weight: 51 kg

DRUGS (10)
  1. DILTIAZEM HCL [Interacting]
  2. LEVOTHYROXINE SODIUM [Concomitant]
  3. CALCIUM CARBONATE [Concomitant]
  4. PRIMIDONE [Interacting]
     Dosage: 375 MILLIGRAM;
  5. DILTIAZEM HCL [Suspect]
     Dosage: 360 MILLIGRAM;
  6. PRIMIDONE [Interacting]
     Dosage: 250 MILLIGRAM;
  7. PINDOLOL [Concomitant]
  8. SENNOSIDE A+B CALCIUM [Concomitant]
  9. DOCUSATE SODIUM [Concomitant]
  10. OXAZEPAM [Concomitant]

REACTIONS (4)
  - HYPERTENSION [None]
  - DRUG INTERACTION [None]
  - LOSS OF CONSCIOUSNESS [None]
  - CONVULSION [None]
